FAERS Safety Report 5141172-3 (Version None)
Quarter: 2006Q4

REPORT INFORMATION
  Report Type: 
  Country: None (occurrence: None)
  Receive Date: 20061026
  Receipt Date: 20061016
  Transmission Date: 20070319
  Serious: Yes (Other)
  Sender: FDA-Public Use
  Company Number: L06-SWI-04328-01

PATIENT

DRUGS (2)
  1. CARBAMAZEPINE [Suspect]
     Indication: FACIAL NEURALGIA
  2. UNSPECIFIED ANTIHYPERTENSIVES [Suspect]
     Indication: HYPERTENSION

REACTIONS (3)
  - DRUG INTERACTION [None]
  - HYPERTENSION [None]
  - THERAPY NON-RESPONDER [None]
